FAERS Safety Report 20895380 (Version 1)
Quarter: 2022Q2

REPORT INFORMATION
  Report Type: Report from Study
  Country: DE (occurrence: DE)
  Receive Date: 20220531
  Receipt Date: 20220531
  Transmission Date: 20220720
  Serious: Yes (Hospitalization, Other)
  Sender: FDA-Public Use
  Company Number: DE-BRISTOL-MYERS SQUIBB COMPANY-BMS-2021-132169

PATIENT
  Age: 61 Year
  Sex: Male
  Weight: 78.5 kg

DRUGS (16)
  1. ELOTUZUMAB [Suspect]
     Active Substance: ELOTUZUMAB
     Indication: Plasma cell myeloma
     Dosage: 850 MILLIGRAM, QD (10 MG/KG, CYCLICAL)
     Route: 041
     Dates: start: 20210423, end: 20210423
  2. ELOTUZUMAB [Suspect]
     Active Substance: ELOTUZUMAB
     Dosage: 830 MILLIGRAM, QD (10 MG/KG, CYCLICAL)
     Route: 041
     Dates: start: 20210503, end: 20210708
  3. ELOTUZUMAB [Suspect]
     Active Substance: ELOTUZUMAB
     Dosage: 780 MILLIGRAM, QD (10 MG/KG, CYCLICAL)
     Route: 041
     Dates: start: 20210818, end: 20210930
  4. ELOTUZUMAB [Suspect]
     Active Substance: ELOTUZUMAB
     Dosage: 800 MILLIGRAM, QD (10 MG/KG, CYCLICAL)
     Route: 041
     Dates: start: 20211014, end: 20211028
  5. LENALIDOMIDE [Suspect]
     Active Substance: LENALIDOMIDE
     Indication: Plasma cell myeloma
     Dosage: 25 MILLIGRAM, QD (25 MG, CYCLICAL)
     Route: 048
     Dates: start: 20210423, end: 20211103
  6. CARFILZOMIB [Suspect]
     Active Substance: CARFILZOMIB
     Indication: Plasma cell myeloma
     Dosage: 40 MILLIGRAM, QD (20 MG/M2, CYCLICAL)
     Route: 041
     Dates: start: 20210423, end: 20210512
  7. CARFILZOMIB [Suspect]
     Active Substance: CARFILZOMIB
     Dosage: 72 MILLIGRAM, QD (36 MG/M2, CYCLICAL)
     Route: 041
     Dates: start: 20210527, end: 20210625
  8. CARFILZOMIB [Suspect]
     Active Substance: CARFILZOMIB
     Dosage: 70.56 MILLIGRAM, QD (36 MG/M2, CYCLICAL)
     Route: 041
     Dates: start: 20210701, end: 20210709
  9. CARFILZOMIB [Suspect]
     Active Substance: CARFILZOMIB
     Dosage: 69.84 MILLIGRAM, QD (36 MG/M2, CYCLICAL)
     Route: 041
     Dates: start: 20210818, end: 20211001
  10. CARFILZOMIB [Suspect]
     Active Substance: CARFILZOMIB
     Dosage: 70.56 MILLIGRAM, QD (36 MG/M2, CYCLICAL)
     Route: 041
     Dates: start: 20211014, end: 20211029
  11. DEXAMETHASONE [Suspect]
     Active Substance: DEXAMETHASONE
     Indication: Plasma cell myeloma
     Dosage: 28 MILLIGRAM, QD (28 MG, CYCLICAL)
     Route: 048
     Dates: start: 20210423, end: 20211028
  12. DEXAMETHASONE [Suspect]
     Active Substance: DEXAMETHASONE
     Dosage: 40 MILLIGRAM, QD (40 MG, CYCLICAL)
     Route: 048
     Dates: start: 20210701, end: 20211104
  13. DEXAMETHASONE [Suspect]
     Active Substance: DEXAMETHASONE
     Route: 041
     Dates: start: 20210423, end: 20211028
  14. CYCLOPHOSPHAMIDE [Concomitant]
     Active Substance: CYCLOPHOSPHAMIDE
     Indication: Haematopoietic stem cell mobilisation
     Dosage: 4850 MILLIGRAM ONCE
     Route: 040
     Dates: start: 20210727, end: 20210727
  15. NEUPOGEN [Concomitant]
     Active Substance: FILGRASTIM
     Indication: Plasma cell myeloma
     Dosage: 508 MIO IU I.E OVERALL AS NECESSARY
     Route: 058
     Dates: start: 20210801, end: 20210810
  16. PLERIXAFOR [Concomitant]
     Active Substance: PLERIXAFOR
     Indication: Plasma cell myeloma
     Dosage: 24 MG 1X/DAY
     Route: 058
     Dates: start: 20210809, end: 20210810

REACTIONS (1)
  - Chronic myeloid leukaemia [Unknown]

NARRATIVE: CASE EVENT DATE: 20211204
